FAERS Safety Report 8392189-7 (Version None)
Quarter: 2012Q1

REPORT INFORMATION
  Report Type: 
  Country: None (occurrence: None)
  Receive Date: 20120323
  Receipt Date: 20110228
  Transmission Date: 20120608
  Serious: Yes (Hospitalization)
  Sender: FDA-Public Use
  Company Number: 163-21880-11030128

PATIENT
  Age: 72 Year
  Sex: Female

DRUGS (4)
  1. ATENOLOL [Concomitant]
  2. REVLIMID [Suspect]
     Indication: MULTIPLE MYELOMA
     Dosage: 15 MG, DAILY X 14 DAYS, PO
     Route: 048
     Dates: start: 20110215, end: 20110101
  3. MICARDIS [Concomitant]
  4. ZETIA [Concomitant]

REACTIONS (2)
  - PYREXIA [None]
  - RASH [None]
